FAERS Safety Report 25273547 (Version 1)
Quarter: 2025Q2

REPORT INFORMATION
  Report Type: Spontaneous
  Country: AR (occurrence: AR)
  Receive Date: 20250506
  Receipt Date: 20250506
  Transmission Date: 20250717
  Serious: Yes (Hospitalization, Other)
  Sender: TAKEDA
  Company Number: AR-LUNDBECK-DKLU4013555

PATIENT
  Age: 64 Year
  Sex: Female

DRUGS (19)
  1. BRINTELLIX [Suspect]
     Active Substance: VORTIOXETINE HYDROBROMIDE
     Indication: Product used for unknown indication
  2. BRINTELLIX [Suspect]
     Active Substance: VORTIOXETINE HYDROBROMIDE
  3. LEXAPRO [Concomitant]
     Active Substance: ESCITALOPRAM OXALATE
     Indication: Product used for unknown indication
  4. Alercas [Concomitant]
     Indication: Hypersensitivity
  5. Hexaler Cort [Concomitant]
     Indication: Hypersensitivity
  6. SERETIDE [Concomitant]
     Active Substance: FLUTICASONE PROPIONATE\SALMETEROL XINAFOATE
     Indication: Product used for unknown indication
  7. FLUTICASONE PROPIONATE [Concomitant]
     Active Substance: FLUTICASONE PROPIONATE
     Indication: Product used for unknown indication
  8. Xylisol [Concomitant]
     Indication: Product used for unknown indication
  9. Hypersol [Concomitant]
     Indication: Product used for unknown indication
  10. Inhalan az [Concomitant]
     Indication: Product used for unknown indication
  11. Aucic plus [Concomitant]
     Indication: Product used for unknown indication
  12. Olopat f [Concomitant]
     Indication: Product used for unknown indication
  13. BISOPROLOL FUMARATE [Concomitant]
     Active Substance: BISOPROLOL FUMARATE
     Indication: Product used for unknown indication
  14. ASPIRIN [Concomitant]
     Active Substance: ASPIRIN
     Indication: Product used for unknown indication
  15. Rosufen [Concomitant]
     Indication: Product used for unknown indication
  16. Nulipar lp [Concomitant]
     Indication: Parkinson^s disease
  17. Lebocar 100/25 [Concomitant]
     Indication: Parkinson^s disease
  18. Ecuamon [Concomitant]
     Indication: Parkinson^s disease
  19. RIVOTRIL [Concomitant]
     Active Substance: CLONAZEPAM
     Indication: Product used for unknown indication

REACTIONS (3)
  - Pneumonia [Recovering/Resolving]
  - Eosinophil count abnormal [Unknown]
  - Eosinophilia [Unknown]

NARRATIVE: CASE EVENT DATE: 20250101
